FAERS Safety Report 9161834 (Version 2)
Quarter: 2013Q2

REPORT INFORMATION
  Report Type: Spontaneous
  Country: US (occurrence: US)
  Receive Date: 20130314
  Receipt Date: 20130410
  Transmission Date: 20140414
  Serious: No
  Sender: FDA-Public Use
  Company Number: US-BIOGENIDEC-2013BI022984

PATIENT
  Age: 26 Year
  Sex: Female
  Weight: 38 kg

DRUGS (1)
  1. TYSABRI [Suspect]
     Indication: MULTIPLE SCLEROSIS
     Route: 042
     Dates: start: 20110325, end: 20121114

REACTIONS (2)
  - Weight decreased [Unknown]
  - Decreased appetite [Recovered/Resolved]
